FAERS Safety Report 6921491-8 (Version None)
Quarter: 2010Q3

REPORT INFORMATION
  Report Type: 
  Country: None (occurrence: None)
  Receive Date: 20100812
  Receipt Date: 20100701
  Transmission Date: 20110219
  Serious: Yes (Life-Threatening, Hospitalization, Other)
  Sender: FDA-Public Use
  Company Number: US-BAXTER-2010BH008217

PATIENT
  Age: 29 Year
  Sex: Male
  Weight: 126 kg

DRUGS (18)
  1. HEPARIN SODIUM INJECTION [Suspect]
     Indication: STERNOTOMY
     Route: 042
     Dates: start: 20080414, end: 20080414
  2. HEPARIN SODIUM INJECTION [Suspect]
     Indication: CORONARY ARTERY BYPASS
     Route: 042
     Dates: start: 20080414, end: 20080414
  3. HEPARIN SODIUM INJECTION [Suspect]
     Indication: INTRA-AORTIC BALLOON PLACEMENT
     Route: 042
     Dates: start: 20080414, end: 20080414
  4. HEPARIN SODIUM INJECTION [Suspect]
     Indication: THROMBECTOMY
     Route: 042
     Dates: start: 20080414, end: 20080414
  5. HEPARIN SODIUM INJECTION [Suspect]
     Route: 013
     Dates: start: 20080419, end: 20080419
  6. HEPARIN SODIUM INJECTION [Suspect]
     Route: 013
     Dates: start: 20080419, end: 20080419
  7. HEPARIN SODIUM INJECTION [Suspect]
     Route: 013
     Dates: start: 20080419, end: 20080419
  8. HEPARIN SODIUM INJECTION [Suspect]
     Route: 013
     Dates: start: 20080419, end: 20080419
  9. HEPARIN SODIUM 10,000 UNITS IN SODIUM CHLORIDE 0.45% [Suspect]
     Indication: ACUTE MYOCARDIAL INFARCTION
     Route: 041
     Dates: start: 20080402, end: 20080414
  10. TYLENOL-500 [Concomitant]
     Indication: PRODUCT USED FOR UNKNOWN INDICATION
     Route: 065
  11. ASPIRIN [Concomitant]
     Indication: PRODUCT USED FOR UNKNOWN INDICATION
     Route: 065
  12. LISINOPRIL [Concomitant]
     Indication: PRODUCT USED FOR UNKNOWN INDICATION
     Route: 065
  13. NITROGLYCERIN [Concomitant]
     Indication: PRODUCT USED FOR UNKNOWN INDICATION
     Route: 065
  14. ZOCOR [Concomitant]
     Indication: PRODUCT USED FOR UNKNOWN INDICATION
     Route: 065
  15. GLYBURIDE AND METFORMIN HCL [Concomitant]
     Indication: PRODUCT USED FOR UNKNOWN INDICATION
     Route: 065
  16. MIDAZOLAM HCL [Concomitant]
     Indication: PRODUCT USED FOR UNKNOWN INDICATION
     Route: 041
  17. FENTANYL CITRATE [Concomitant]
     Indication: PRODUCT USED FOR UNKNOWN INDICATION
     Route: 041
  18. PLASMA-LYTE 56 AND DEXTROSE 5% IN PLASTIC CONTAINER [Concomitant]
     Indication: CORONARY ARTERY BYPASS
     Route: 065

REACTIONS (14)
  - ACUTE HEPATIC FAILURE [None]
  - ARTERIAL THROMBOSIS LIMB [None]
  - BLISTER [None]
  - CARDIOGENIC SHOCK [None]
  - CEREBRAL INFARCTION [None]
  - DEEP VEIN THROMBOSIS [None]
  - FLUID OVERLOAD [None]
  - HEPARIN-INDUCED THROMBOCYTOPENIA [None]
  - HYPERSENSITIVITY [None]
  - PAIN [None]
  - RENAL FAILURE ACUTE [None]
  - RESPIRATORY FAILURE [None]
  - RHABDOMYOLYSIS [None]
  - SKIN ULCER [None]
